FAERS Safety Report 5467379-3 (Version None)
Quarter: 2007Q3

REPORT INFORMATION
  Report Type: 
  Country: None (occurrence: None)
  Receive Date: 20070925
  Receipt Date: 20070917
  Transmission Date: 20080115
  Serious: Yes (Other)
  Sender: FDA-Public Use
  Company Number: US-PFIZER INC-2007077474

PATIENT
  Sex: Female
  Weight: 49 kg

DRUGS (7)
  1. CHANTIX [Suspect]
     Indication: SMOKING CESSATION THERAPY
  2. PLAVIX [Concomitant]
  3. METOPROLOL [Concomitant]
  4. TENIDAP SODIUM [Concomitant]
  5. LIPITOR [Concomitant]
  6. CALCIUM [Concomitant]
  7. VITAMIN B [Concomitant]

REACTIONS (4)
  - FATIGUE [None]
  - NAUSEA [None]
  - STENT PLACEMENT [None]
  - VOMITING [None]
